FAERS Safety Report 6665962-0 (Version None)
Quarter: 2010Q1

REPORT INFORMATION
  Report Type: 
  Country: None (occurrence: None)
  Receive Date: 20100326
  Receipt Date: 20090327
  Transmission Date: 20100710
  Serious: Yes (Hospitalization)
  Sender: FDA-Public Use
  Company Number: 2009SU0071

PATIENT
  Age: 88 Year
  Sex: Male

DRUGS (1)
  1. SULAR [Suspect]
     Indication: HYPERTENSION
     Dosage: 8.5 MG, DAILY

REACTIONS (1)
  - BLOOD PRESSURE DECREASED [None]
